FAERS Safety Report 7579534-7 (Version None)
Quarter: 2011Q2

REPORT INFORMATION
  Report Type: 
  Country: None (occurrence: None)
  Receive Date: 20110629
  Receipt Date: 20110616
  Transmission Date: 20111010
  Serious: Yes (Hospitalization, Other)
  Sender: FDA-Public Use
  Company Number: US-BAYER-201033005NA

PATIENT
  Age: 50 Year
  Sex: Female

DRUGS (6)
  1. BETASERON [Suspect]
     Indication: MULTIPLE SCLEROSIS
     Dosage: 8 MIU, QOD
     Route: 058
     Dates: start: 20030701
  2. SOLU-MEDROL [Suspect]
     Indication: MULTIPLE SCLEROSIS RELAPSE
     Route: 042
  3. INDERAL [Concomitant]
     Indication: HYPERTENSION
     Dosage: UNK
  4. POLYGAM S/D [Suspect]
     Dosage: UNK
     Dates: start: 20110531, end: 20110605
  5. BETASERON [Suspect]
     Dosage: DAILY DOSE 8 MIU
     Route: 058
     Dates: start: 20040709, end: 20040819
  6. BETASERON [Suspect]
     Dosage: 8 MIU, QOD
     Route: 058
     Dates: start: 20050901

REACTIONS (8)
  - GAIT DISTURBANCE [None]
  - DEHYDRATION [None]
  - SPEECH DISORDER [None]
  - MIGRAINE [None]
  - BLOOD PRESSURE INCREASED [None]
  - VOMITING [None]
  - MULTIPLE SCLEROSIS RELAPSE [None]
  - MENORRHAGIA [None]
